FAERS Safety Report 9651843 (Version 1)
Quarter: 2013Q4

REPORT INFORMATION
  Report Type: Spontaneous
  Country: CA (occurrence: CA)
  Receive Date: 20131029
  Receipt Date: 20131029
  Transmission Date: 20140711
  Serious: Yes (Hospitalization)
  Sender: FDA-Public Use
  Company Number: CA-NOVOPROD-390728

PATIENT
  Age: 66 Year
  Sex: Male

DRUGS (4)
  1. LEVEMIR PENFILL [Suspect]
     Indication: PRODUCT USED FOR UNKNOWN INDICATION
     Dosage: DOSE DECREASED TEMPORARILY WHEN HOSPITALIZED THEN TITRATED BACK TO 150 UNITS.
     Route: 058
  2. LEVEMIR PENFILL [Suspect]
     Dosage: UNK
     Route: 058
  3. LEVEMIR PENFILL [Suspect]
     Dosage: 150 IU, QD
     Route: 058
  4. HUMALOG [Concomitant]
     Dosage: 90 IU, QD (DOSAGE VARIES FROM 40-90 UNITS PER DAY)
     Route: 058

REACTIONS (14)
  - Abdominal pain [Unknown]
  - Dyspnoea [Recovered/Resolved]
  - Blood glucose increased [Unknown]
  - Rash [Unknown]
  - Headache [Unknown]
  - Nausea [Unknown]
  - Back pain [Unknown]
  - Fatigue [Unknown]
  - Dizziness [Unknown]
  - Influenza like illness [Unknown]
  - Upper respiratory tract infection [Unknown]
  - Vomiting [Unknown]
  - Weight increased [Unknown]
  - Hypoglycaemia [Unknown]
